FAERS Safety Report 6359983-5 (Version None)
Quarter: 2009Q3

REPORT INFORMATION
  Report Type: 
  Country: None (occurrence: None)
  Receive Date: 20090917
  Receipt Date: 20090908
  Transmission Date: 20100115
  Serious: Yes (Other)
  Sender: FDA-Public Use
  Company Number: US-PFIZER INC-2009267546

PATIENT
  Sex: Male

DRUGS (1)
  1. BEXTRA [Suspect]
     Dosage: 20 MG, 1X/DAY
     Route: 048
     Dates: end: 20050407

REACTIONS (1)
  - STEVENS-JOHNSON SYNDROME [None]
